FAERS Safety Report 23604796 (Version 1)
Quarter: 2024Q1

REPORT INFORMATION
  Report Type: Spontaneous
  Country: CN (occurrence: CN)
  Receive Date: 20240307
  Receipt Date: 20240307
  Transmission Date: 20240410
  Serious: Yes (Other)
  Sender: FDA-Public Use
  Company Number: None

PATIENT
  Age: 6 Decade
  Sex: Female

DRUGS (12)
  1. PREDNISOLONE [Suspect]
     Active Substance: PREDNISOLONE
     Indication: Angioimmunoblastic T-cell lymphoma stage IV
     Dosage: 500 MILLIGRAM, CYCLICAL (100 MG/DAY, DAYS 1-5) (CMOP REGIMEN)
     Route: 065
     Dates: start: 202202, end: 202207
  2. PREDNISOLONE [Suspect]
     Active Substance: PREDNISOLONE
     Indication: Metastases to lymph nodes
  3. PREDNISOLONE [Suspect]
     Active Substance: PREDNISOLONE
     Indication: Metastases to skin
  4. CYCLOPHOSPHAMIDE [Suspect]
     Active Substance: CYCLOPHOSPHAMIDE
     Indication: Metastases to lymph nodes
     Dosage: 750 MILLIGRAM/SQ. METER, CYCLICAL (750 MG/M2, DAY 1) CMOP REGIMEN
     Route: 065
     Dates: start: 202202, end: 202207
  5. CYCLOPHOSPHAMIDE [Suspect]
     Active Substance: CYCLOPHOSPHAMIDE
     Indication: Metastases to skin
  6. CYCLOPHOSPHAMIDE [Suspect]
     Active Substance: CYCLOPHOSPHAMIDE
     Indication: Angioimmunoblastic T-cell lymphoma stage IV
  7. MITOXANTRONE HYDROCHLORIDE [Suspect]
     Active Substance: MITOXANTRONE HYDROCHLORIDE
     Indication: Metastases to skin
     Dosage: 20 MILLIGRAM/SQ. METER, CYCLICAL (20 MG/M2, DAY 1) CMOP REGIMEN (LIPOSOME)
     Route: 065
     Dates: start: 202202, end: 202207
  8. MITOXANTRONE HYDROCHLORIDE [Suspect]
     Active Substance: MITOXANTRONE HYDROCHLORIDE
     Indication: Angioimmunoblastic T-cell lymphoma stage IV
  9. MITOXANTRONE HYDROCHLORIDE [Suspect]
     Active Substance: MITOXANTRONE HYDROCHLORIDE
     Indication: Metastases to lymph nodes
  10. VINCRISTINE [Suspect]
     Active Substance: VINCRISTINE
     Indication: Angioimmunoblastic T-cell lymphoma stage IV
     Dosage: 1.4 MILLIGRAM/SQ. METER, CYCLICAL (1.4 MG/M2, DAY 1)
     Route: 065
     Dates: start: 202202, end: 202207
  11. VINCRISTINE [Suspect]
     Active Substance: VINCRISTINE
     Indication: Metastases to lymph nodes
  12. VINCRISTINE [Suspect]
     Active Substance: VINCRISTINE
     Indication: Metastases to skin

REACTIONS (3)
  - Haematotoxicity [Unknown]
  - Skin hyperpigmentation [Recovered/Resolved]
  - Nausea [Unknown]

NARRATIVE: CASE EVENT DATE: 20220101
